FAERS Safety Report 13064059 (Version 1)
Quarter: 2016Q4

REPORT INFORMATION
  Report Type: Spontaneous
  Country: GB (occurrence: GB)
  Receive Date: 20161227
  Receipt Date: 20161227
  Transmission Date: 20170207
  Serious: Yes (Death, Hospitalization, Other)
  Sender: FDA-Public Use
  Company Number: GB-CELGENEUS-GBR-2016123771

PATIENT
  Sex: Female

DRUGS (7)
  1. POMALIDOMIDE [Suspect]
     Active Substance: POMALIDOMIDE
     Indication: PLASMACYTOMA
     Route: 048
     Dates: start: 201507
  2. DEXMETHASONE [Concomitant]
     Active Substance: DEXAMETHASONE
     Route: 065
     Dates: start: 201310
  3. DEXMETHASONE [Concomitant]
     Active Substance: DEXAMETHASONE
     Route: 065
     Dates: start: 201406
  4. DEXMETHASONE [Concomitant]
     Active Substance: DEXAMETHASONE
     Route: 065
  5. DEXMETHASONE [Concomitant]
     Active Substance: DEXAMETHASONE
     Indication: PLASMACYTOMA
     Dosage: 40MG
     Route: 065
     Dates: start: 201111
  6. DEXMETHASONE [Concomitant]
     Active Substance: DEXAMETHASONE
     Route: 065
     Dates: start: 201412
  7. DEXMETHASONE [Concomitant]
     Active Substance: DEXAMETHASONE
     Route: 065
     Dates: start: 201507

REACTIONS (3)
  - Humerus fracture [Unknown]
  - Sepsis [Fatal]
  - Sepsis [Unknown]

NARRATIVE: CASE EVENT DATE: 201606
